FAERS Safety Report 8650558 (Version 2)
Quarter: 2012Q4

REPORT INFORMATION
  Report Type: 
  Country: US (occurrence: US)
  Receive Date: 20120705
  Receipt Date: 20120904
  Transmission Date: 20130627
  Serious: Yes (Other)
  Sender: FDA-Public Use
  Company Number: US-JNJFOC-20120700791

PATIENT
  Age: 29 Year
  Sex: Male
  Weight: 76.2 kg

DRUGS (3)
  1. ZYRTEC IR [Suspect]
     Indication: MULTIPLE ALLERGIES
     Route: 048
  2. ZYRTEC IR [Suspect]
     Indication: MULTIPLE ALLERGIES
     Dosage: only 2 times, about 2-4 hours aprt
     Route: 048
     Dates: start: 20120624, end: 20120624
  3. AN UNKNOWN MEDICATION [Concomitant]
     Indication: PRODUCT USED FOR UNKNOWN INDICATION
     Route: 065

REACTIONS (3)
  - Anaphylactic shock [Recovered/Resolved]
  - Overdose [Recovered/Resolved]
  - Epistaxis [Recovered/Resolved]
